FAERS Safety Report 7039106-X (Version None)
Quarter: 2010Q4

REPORT INFORMATION
  Report Type: 
  Country: None (occurrence: None)
  Receive Date: 20101012
  Receipt Date: 20101005
  Transmission Date: 20110411
  Serious: Yes (Life-Threatening, Hospitalization, Other)
  Sender: FDA-Public Use
  Company Number: DE-ELI_LILLY_AND_COMPANY-DE201010001708

PATIENT
  Age: 25 Year
  Sex: Male

DRUGS (2)
  1. HUMALOG [Suspect]
     Indication: TYPE 1 DIABETES MELLITUS
     Route: 058
  2. BERLINSULIN NPH [Suspect]
     Indication: TYPE 1 DIABETES MELLITUS
     Dosage: 38 IU, UNKNOWN
     Route: 058

REACTIONS (6)
  - GRAND MAL CONVULSION [None]
  - HYPERHIDROSIS [None]
  - HYPOGLYCAEMIA [None]
  - RESTLESSNESS [None]
  - SOMNOLENCE [None]
  - TACHYCARDIA [None]
